FAERS Safety Report 12120754 (Version 1)
Quarter: 2016Q1

REPORT INFORMATION
  Report Type: Spontaneous
  Country: US (occurrence: US)
  Receive Date: 20160226
  Receipt Date: 20160226
  Transmission Date: 20160526
  Serious: No
  Sender: FDA-Public Use
  Company Number: US-ALLERGAN-1315546US

PATIENT
  Age: 77 Year
  Sex: Female

DRUGS (2)
  1. REFRESH OPTIVE SENSITIVE [Suspect]
     Active Substance: CARBOXYMETHYLCELLULOSE SODIUM\GLYCERIN
     Indication: EYE LUBRICATION THERAPY
     Dosage: 1 GTT, UNK
     Route: 047
     Dates: start: 20130927
  2. VARIOUS EYE DROPS NOS [Concomitant]
     Indication: POSTOPERATIVE CARE
     Dosage: UNK
     Dates: start: 20131001

REACTIONS (3)
  - Eye pain [Unknown]
  - Pruritus generalised [Recovering/Resolving]
  - Vision blurred [Unknown]
